FAERS Safety Report 7735403-0 (Version None)
Quarter: 2011Q3

REPORT INFORMATION
  Report Type: 
  Country: None (occurrence: None)
  Receive Date: 20110907
  Receipt Date: 20110829
  Transmission Date: 20111222
  Serious: Yes (Hospitalization, Other)
  Sender: FDA-Public Use
  Company Number: US-B.I. PHARMACEUTICALS,INC./RIDGEFIELD-2011-BP-17773BP

PATIENT
  Age: 79 Year
  Sex: Male

DRUGS (5)
  1. BISOPROLOL FUMARATE [Concomitant]
     Dosage: 10 NR
  2. VERAPAMIL EXTENDED-RELEASE [Concomitant]
     Dosage: 240 NR
  3. PRAVASTATIN [Concomitant]
     Dosage: 40 NR
  4. LISINOPRIL [Concomitant]
     Dosage: 10 NR
  5. PRADAXA [Suspect]
     Indication: ATRIAL FIBRILLATION
     Dosage: 300 MG
     Route: 048
     Dates: start: 20110708

REACTIONS (1)
  - EMBOLIC CEREBRAL INFARCTION [None]
